FAERS Safety Report 18980054 (Version 1)
Quarter: 2021Q1

REPORT INFORMATION
  Report Type: Other
  Country: CA (occurrence: CA)
  Receive Date: 20210308
  Receipt Date: 20210308
  Transmission Date: 20210420
  Serious: Yes (Hospitalization)
  Sender: FDA-Public Use
  Company Number: CA-HLS-202107163

PATIENT
  Sex: Male

DRUGS (3)
  1. BUPROPION XL [Suspect]
     Active Substance: BUPROPION
     Dosage: 300MG
     Route: 065
  2. CLOZAPINE. [Suspect]
     Active Substance: CLOZAPINE
     Indication: SCHIZOAFFECTIVE DISORDER
     Route: 065
  3. CLOZAPINE. [Suspect]
     Active Substance: CLOZAPINE
     Indication: SCHIZOAFFECTIVE DISORDER
     Dosage: 50MG DAILY
     Route: 065

REACTIONS (5)
  - Enuresis [Unknown]
  - Sedation [Unknown]
  - Hallucination, auditory [Unknown]
  - Orthostatic hypotension [Unknown]
  - Delusion [Recovering/Resolving]
